FAERS Safety Report 11165581 (Version 1)
Quarter: 2015Q2

REPORT INFORMATION
  Report Type: Spontaneous
  Country: US (occurrence: US)
  Receive Date: 20150604
  Receipt Date: 20150604
  Transmission Date: 20150821
  Serious: Yes (Other)
  Sender: FDA-Public Use
  Company Number: US-JNJFOC-20150519223

PATIENT
  Age: 69 Year
  Sex: Male
  Weight: 82.56 kg

DRUGS (11)
  1. LOSARTAN [Concomitant]
     Active Substance: LOSARTAN
  2. KELP [Concomitant]
     Active Substance: KELP
  3. SOFOSBUVIR [Suspect]
     Active Substance: SOFOSBUVIR
     Indication: HEPATITIS C
     Dates: start: 20140804, end: 201408
  4. ATORVASTATIN [Concomitant]
     Active Substance: ATORVASTATIN
  5. OLYSIO [Suspect]
     Active Substance: SIMEPREVIR
     Indication: HEPATITIS C
     Route: 048
     Dates: start: 20140804, end: 201410
  6. VITAMIN C [Concomitant]
     Active Substance: ASCORBIC ACID
  7. SILYMARIN [Concomitant]
     Active Substance: MILK THISTLE
  8. LOW DOSE ASPIRIN [Concomitant]
     Active Substance: ASPIRIN
  9. LANTUS [Concomitant]
     Active Substance: INSULIN GLARGINE
  10. VITAMIN D [Concomitant]
     Active Substance: CHOLECALCIFEROL
  11. VITAMIN B [Concomitant]
     Active Substance: VITAMIN B

REACTIONS (4)
  - Memory impairment [Not Recovered/Not Resolved]
  - Tachyphrenia [Not Recovered/Not Resolved]
  - Ammonia decreased [Unknown]
  - Glycosylated haemoglobin increased [Unknown]

NARRATIVE: CASE EVENT DATE: 20140922
